FAERS Safety Report 15738406 (Version 1)
Quarter: 2018Q4

REPORT INFORMATION
  Report Type: Spontaneous
  Country: BR (occurrence: BR)
  Receive Date: 20181219
  Receipt Date: 20181219
  Transmission Date: 20190205
  Serious: Yes (Life-Threatening, Hospitalization)
  Sender: FDA-Public Use
  Company Number: BR-CELLTRION INC.-2018BR024547

PATIENT

DRUGS (2)
  1. REMSIMA [Suspect]
     Active Substance: INFLIXIMAB
     Indication: PRODUCT USED FOR UNKNOWN INDICATION
     Dosage: UNK
     Route: 065
     Dates: start: 20181025, end: 20181025
  2. REMSIMA [Suspect]
     Active Substance: INFLIXIMAB
     Dosage: UNK
     Route: 065
     Dates: start: 20181109, end: 20181109

REACTIONS (9)
  - Pruritus [Unknown]
  - Speech disorder [Unknown]
  - Feeling abnormal [Unknown]
  - Swollen tongue [Unknown]
  - Throat tightness [Unknown]
  - Headache [Unknown]
  - Hypersensitivity [Unknown]
  - Hepatic pain [Unknown]
  - Vomiting [Unknown]

NARRATIVE: CASE EVENT DATE: 20181109
